FAERS Safety Report 24218206 (Version 2)
Quarter: 2024Q3

REPORT INFORMATION
  Report Type: Spontaneous
  Country: US (occurrence: US)
  Receive Date: 20240816
  Receipt Date: 20240910
  Transmission Date: 20241017
  Serious: No
  Sender: PFIZER
  Company Number: US-PFIZER INC-PV202400105811

PATIENT
  Sex: Male

DRUGS (2)
  1. ZIRABEV [Suspect]
     Active Substance: BEVACIZUMAB-BVZR
     Dosage: 500 MG (1 VIAL OF 100MG AND 1 VIAL OF 400MG)
  2. ZIRABEV [Suspect]
     Active Substance: BEVACIZUMAB-BVZR
     Dosage: 500 MG (1 VIAL OF 100MG AND 1 VIAL OF 400MG)

REACTIONS (1)
  - Impaired healing [Unknown]
